FAERS Safety Report 7304426-8 (Version None)
Quarter: 2011Q1

REPORT INFORMATION
  Report Type: 
  Country: None (occurrence: None)
  Receive Date: 20110221
  Receipt Date: 20110208
  Transmission Date: 20110831
  Serious: Yes (Life-Threatening)
  Sender: FDA-Public Use
  Company Number: US-ELI_LILLY_AND_COMPANY-US201102002459

PATIENT
  Sex: Male

DRUGS (31)
  1. RANITIDINE [Concomitant]
     Indication: GASTROOESOPHAGEAL REFLUX DISEASE
     Dosage: 150 MG, 2/D
     Dates: start: 20090817, end: 20100906
  2. DARBEPOETIN ALFA [Concomitant]
     Indication: ANAEMIA
     Dosage: 200 UG EVERY 2 WEEKS
     Dates: start: 20100602
  3. PARACETAMOL [Concomitant]
     Indication: DISCOMFORT
     Dosage: 650 MG AS REQUIRED
     Dates: start: 20100908
  4. OTHER PHARMA COMPANY INV DRUG [Suspect]
     Dosage: 250 MG, 6 DAYS OF EACH 21 DAY CYCLE
     Route: 048
     Dates: start: 20100714, end: 20101203
  5. MAGNESIUM CITRATE [Concomitant]
     Indication: CONSTIPATION PROPHYLAXIS
     Dosage: UNK, AS REQUIRED
     Dates: start: 20091011
  6. OMEPRAZOLE [Concomitant]
     Indication: GASTROOESOPHAGEAL REFLUX DISEASE
     Dosage: 20 MG, DAILY (1/D)
     Dates: start: 20100906
  7. PROCHLORPERAZINE [Concomitant]
     Indication: NAUSEA
     Dosage: 10 MG AS REQUIRED
     Dates: start: 20080128
  8. GABAPENTIN [Concomitant]
     Indication: PAIN
     Dosage: 300 MG, 3/D
     Dates: start: 20100420
  9. LACTULOSE [Concomitant]
     Indication: CONSTIPATION PROPHYLAXIS
     Dosage: 10/15 G/ML (AS REQUIRED)
     Dates: start: 20091215
  10. LORAZEPAM [Concomitant]
     Indication: INSOMNIA
     Dosage: 1 MG AS REQUIRED
     Dates: start: 20080128
  11. CYANOCOBALAMIN [Concomitant]
     Indication: VITAMIN SUPPLEMENTATION
     Dosage: 100 UG, DAILY (1/D)
     Dates: start: 20101117
  12. OTHER PHARMA COMPANY INV DRUG [Suspect]
     Indication: NEOPLASM
     Dosage: 325 MG, 6 DAYS OF EACH 21 DAY CYCLE
     Route: 048
     Dates: start: 20100510, end: 20100630
  13. POTASSIUM PHOSPHATE DIBASIC [Concomitant]
     Indication: HYPOPHOSPHATAEMIA
     Dosage: 750 MG (250 MG, 3 IN 1 D)
     Dates: start: 20081101
  14. METOPROLOL TARTRATE [Concomitant]
     Indication: HYPERTENSION
     Dosage: 25 MG, DAILY (1/D)
  15. PYRIDOXINE [Concomitant]
     Indication: SUPPLEMENTATION THERAPY
     Dosage: 100 MG, DAILY (1/D)
     Dates: start: 20080825
  16. LISINOPRIL [Concomitant]
     Dosage: 40 MG, DAILY (1/D)
     Dates: start: 20101027
  17. GEMCITABINE HYDROCHLORIDE [Suspect]
     Indication: NEOPLASM
     Dosage: 750 MG/M2, 2 DAYS OF EACH 21 DAY CYCLE
     Route: 042
     Dates: start: 20100510, end: 20100602
  18. LIDOCAINE [Concomitant]
     Indication: PAIN
     Dosage: 700 MG PATCH 12 HOURS ON 12 HOURS OFF
     Route: 062
     Dates: start: 20100427
  19. MORPHINE [Concomitant]
     Indication: MUSCULOSKELETAL PAIN
     Dosage: 15 MG AS REQUIRED
     Dates: start: 20080101
  20. ONDANSERTRON HCL [Concomitant]
     Indication: NAUSEA
     Dosage: 8 MG AS REQUIRED
     Dates: start: 20080101
  21. CALCIUM CARBONATE [Concomitant]
     Indication: MINERAL SUPPLEMENTATION
     Dosage: 1000 MG, DAILY (1/D)
     Dates: start: 20100602
  22. OXYCODONE [Concomitant]
     Indication: CANCER PAIN
     Dosage: 10 MG, DAILY (1/D)
     Dates: start: 20100922
  23. LISINOPRIL [Concomitant]
     Dosage: 20 MG, DAILY (1/D)
     Dates: start: 20101020, end: 20101026
  24. AMLODIPINE [Concomitant]
     Indication: HYPERTENSION
     Dosage: 10 MG, DAILY (1/D)
     Dates: start: 20101110
  25. SODIUM CHLORIDE [Concomitant]
     Indication: PROPHYLAXIS AGAINST DEHYDRATION
     Dosage: 1000 ML AS REQUIRED
     Dates: start: 20100903
  26. GEMCITABINE HYDROCHLORIDE [Suspect]
     Dosage: 600 MG/M2, 2 DAYS OF EACH 21 DAY CYCLE
     Route: 042
     Dates: start: 20100616, end: 20101201
  27. CITALOPRAM [Concomitant]
     Indication: DEPRESSION
     Dosage: 10 MG, DAILY (1/D)
     Dates: start: 20101023
  28. LOPERAMIDE HYDROCHLORIDE [Concomitant]
     Indication: DIARRHOEA
     Dosage: AS DIRECTED
  29. LISINOPRIL [Concomitant]
     Indication: HYPERTENSION
     Dosage: 10 MG, DAILY (1/D)
     Dates: start: 20101013, end: 20101019
  30. DOCUSATE SODIUM [Concomitant]
     Indication: CONSTIPATION PROPHYLAXIS
     Dosage: 100 MG AS REQUIRED
     Dates: start: 20080204
  31. SENNA ALEXANDRINA [Concomitant]
     Indication: CONSTIPATION PROPHYLAXIS
     Dosage: 8.6 MG AS REQUIRED
     Dates: start: 20091011

REACTIONS (1)
  - THROMBOTIC THROMBOCYTOPENIC PURPURA [None]
